FAERS Safety Report 4869897-5 (Version None)
Quarter: 2005Q4

REPORT INFORMATION
  Report Type: 
  Country: None (occurrence: None)
  Receive Date: 20051230
  Receipt Date: 20050921
  Transmission Date: 20060501
  Serious: Yes (Hospitalization)
  Sender: FDA-Public Use
  Company Number: US-MERCK-0509USA03417

PATIENT
  Age: 56 Year
  Sex: Female
  Weight: 124 kg

DRUGS (19)
  1. VIOXX [Suspect]
     Indication: ARTHRITIS
     Route: 048
     Dates: start: 20001213, end: 20030401
  2. VIOXX [Suspect]
     Indication: INFLAMMATION
     Route: 048
     Dates: start: 20001213, end: 20030401
  3. LASIX [Concomitant]
     Indication: OEDEMA PERIPHERAL
     Route: 048
     Dates: start: 20001213
  4. DIGOXIN [Concomitant]
     Indication: HEART RATE IRREGULAR
     Route: 048
     Dates: start: 19960905
  5. PREMARIN [Concomitant]
     Indication: HORMONE REPLACEMENT THERAPY
     Route: 048
     Dates: start: 19810101
  6. CALCIUM (UNSPECIFIED) [Concomitant]
     Indication: ROUTINE HEALTH MAINTENANCE
     Route: 048
     Dates: start: 19950101
  7. WELLBUTRIN [Concomitant]
     Indication: ANXIETY DISORDER
     Route: 048
     Dates: start: 20010401, end: 20040101
  8. XANAX [Concomitant]
     Indication: GENERALISED ANXIETY DISORDER
     Route: 048
     Dates: start: 20000101, end: 20030101
  9. TRANXENE [Concomitant]
     Indication: GENERALISED ANXIETY DISORDER
     Route: 048
     Dates: start: 19950101, end: 20040101
  10. K-TAB [Concomitant]
     Indication: MUSCLE SPASMS
     Route: 048
  11. NASACORT [Concomitant]
     Indication: SEASONAL ALLERGY
     Route: 055
  12. NASACORT [Concomitant]
     Indication: SINUS CONGESTION
     Route: 055
  13. LORATADINE [Concomitant]
     Indication: SEASONAL ALLERGY
     Route: 048
  14. LORATADINE [Concomitant]
     Indication: SINUS CONGESTION
     Route: 048
  15. METHOCARBAMOL [Concomitant]
     Indication: MUSCLE RELAXANT THERAPY
     Route: 048
  16. FLONASE [Concomitant]
     Indication: SEASONAL ALLERGY
     Route: 055
  17. FLONASE [Concomitant]
     Indication: SINUS CONGESTION
     Route: 055
  18. GUAIFENESIN [Concomitant]
     Route: 048
  19. CELEBREX [Concomitant]
     Indication: ARTHRITIS
     Route: 048
     Dates: start: 19990101, end: 20010407

REACTIONS (14)
  - ACCIDENT AT WORK [None]
  - ACUTE MYOCARDIAL INFARCTION [None]
  - AMNESIA [None]
  - ARTERIOSCLEROSIS CORONARY ARTERY [None]
  - CARDIAC FAILURE CONGESTIVE [None]
  - CHEST PAIN [None]
  - HEART INJURY [None]
  - HYPERTENSION [None]
  - JOINT INJURY [None]
  - LIMB INJURY [None]
  - NEUROPATHY PERIPHERAL [None]
  - PALPITATIONS [None]
  - RAYNAUD'S PHENOMENON [None]
  - SLEEP APNOEA SYNDROME [None]
